FAERS Safety Report 26062734 (Version 1)
Quarter: 2025Q4

REPORT INFORMATION
  Report Type: Spontaneous
  Country: EU (occurrence: EU)
  Receive Date: 20251119
  Receipt Date: 20251119
  Transmission Date: 20260118
  Serious: Yes (Other)
  Sender: ASTELLAS
  Company Number: EU-IPSEN Group, Research and Development-2025-06375

PATIENT
  Age: 64 Year
  Sex: Male
  Weight: 73 kg

DRUGS (11)
  1. ENZALUTAMIDE [Suspect]
     Active Substance: ENZALUTAMIDE
     Indication: Hormone-dependent prostate cancer
     Route: 048
     Dates: start: 20220525, end: 20250909
  2. TRIPTORELIN [Suspect]
     Active Substance: TRIPTORELIN
     Indication: Hormone-dependent prostate cancer
     Route: 030
     Dates: start: 20220525, end: 20220525
  3. GALLIUM GA-68 GOZETOTIDE [Suspect]
     Active Substance: GALLIUM GA-68 GOZETOTIDE
     Indication: Hormone-dependent prostate cancer
     Dosage: KIT FOR RADIOPHARMACEUTICAL PREPARATION?ONCE/SINGLE USE
     Route: 042
     Dates: start: 20220504, end: 20220504
  4. PLANTAGO OVATA MADAUS [Concomitant]
     Indication: Product used for unknown indication
     Route: 065
     Dates: start: 2010
  5. CANDESARTAN CILEXETIL [Concomitant]
     Active Substance: CANDESARTAN CILEXETIL
     Indication: Product used for unknown indication
     Route: 065
     Dates: start: 2014
  6. 77Lu-PSMA-617 [Concomitant]
     Indication: Product used for unknown indication
     Route: 042
     Dates: start: 20220728
  7. 77Lu-PSMA-617 [Concomitant]
     Route: 042
     Dates: start: 20220908
  8. 77Lu-PSMA-617 [Concomitant]
     Route: 042
     Dates: start: 20221020
  9. 77Lu-PSMA-617 [Concomitant]
     Route: 042
     Dates: start: 20221201
  10. 77Lu-PSMA-617 [Concomitant]
     Route: 042
     Dates: start: 20230112
  11. 77Lu-PSMA-617 [Concomitant]
     Route: 042
     Dates: start: 20220616

REACTIONS (2)
  - Erectile dysfunction [Recovering/Resolving]
  - Muscular weakness [Recovering/Resolving]

NARRATIVE: CASE EVENT DATE: 20220525
